FAERS Safety Report 4699947-0 (Version None)
Quarter: 2005Q2

REPORT INFORMATION
  Report Type: 
  Country: None (occurrence: None)
  Receive Date: 20050623
  Receipt Date: 20050614
  Transmission Date: 20051028
  Serious: Yes (Other)
  Sender: FDA-Public Use
  Company Number: 200512483BCC

PATIENT
  Age: 18 Year
  Sex: Male
  Weight: 83.9154 kg

DRUGS (1)
  1. ALEVE [Suspect]
     Dosage: 220 MG, ONCE, ORAL
     Route: 048
     Dates: start: 20050611

REACTIONS (2)
  - FACIAL PALSY [None]
  - SWELLING FACE [None]
